FAERS Safety Report 5358551-1 (Version None)
Quarter: 2007Q2

REPORT INFORMATION
  Report Type: 
  Country: None (occurrence: None)
  Receive Date: 20070613
  Receipt Date: 20070613
  Transmission Date: 20071010
  Serious: Yes (Hospitalization)
  Sender: FDA-Public Use
  Company Number: None

PATIENT
  Age: 40 Year
  Sex: Female
  Weight: 62 kg

DRUGS (12)
  1. LYRICA [Suspect]
     Indication: NEURALGIA
     Dosage: 100MG BID PO
     Route: 048
     Dates: start: 20070130, end: 20070322
  2. ZOLPIDEM [Concomitant]
  3. HYDROCHLOROTHIAZIDE [Concomitant]
  4. LISINOPRIL [Concomitant]
  5. FAMOTIDINE [Concomitant]
  6. ONDANSETRON [Concomitant]
  7. CARVEDILOL [Concomitant]
  8. DILTIAZEM [Concomitant]
  9. HYDRALAZINE HCL [Concomitant]
  10. SUCRALFATE [Concomitant]
  11. TEGASEROD [Concomitant]
  12. SERTRALINE [Concomitant]

REACTIONS (6)
  - EPISTAXIS [None]
  - HYPERTENSIVE CRISIS [None]
  - NAUSEA [None]
  - PLATELET COUNT DECREASED [None]
  - VAGINAL HAEMORRHAGE [None]
  - VOMITING [None]
